FAERS Safety Report 19849677 (Version 1)
Quarter: 2021Q3

REPORT INFORMATION
  Report Type: Spontaneous
  Country: US (occurrence: US)
  Receive Date: 20210917
  Receipt Date: 20210917
  Transmission Date: 20211014
  Serious: Yes (Other)
  Sender: FDA-Public Use
  Company Number: US-TEVA-2021-US-1952471

PATIENT
  Age: 49 Year
  Sex: Female
  Weight: 64.41 kg

DRUGS (8)
  1. SEROQUEL [Concomitant]
     Active Substance: QUETIAPINE FUMARATE
  2. TOPIRAMATE. [Concomitant]
     Active Substance: TOPIRAMATE
  3. FIORICET [Concomitant]
     Active Substance: ACETAMINOPHEN\BUTALBITAL\CAFFEINE
  4. XANAX [Concomitant]
     Active Substance: ALPRAZOLAM
     Dosage: EVERY 3?4 HOURS AS NEEDED
  5. FLUOXETINE [Suspect]
     Active Substance: FLUOXETINE HYDROCHLORIDE
     Route: 065
     Dates: start: 202107
  6. LORAZEPAM. [Concomitant]
     Active Substance: LORAZEPAM
  7. GABAPENTIN. [Concomitant]
     Active Substance: GABAPENTIN
  8. PROZAC [Concomitant]
     Active Substance: FLUOXETINE HYDROCHLORIDE

REACTIONS (7)
  - Depressed level of consciousness [Unknown]
  - Daydreaming [Unknown]
  - Somnolence [Unknown]
  - Weight decreased [Not Recovered/Not Resolved]
  - Inappropriate schedule of product administration [Unknown]
  - Memory impairment [Unknown]
  - Abdominal discomfort [Unknown]

NARRATIVE: CASE EVENT DATE: 2021
